FAERS Safety Report 10178864 (Version 1)
Quarter: 2014Q2

REPORT INFORMATION
  Report Type: Spontaneous
  Country: US (occurrence: US)
  Receive Date: 20140519
  Receipt Date: 20140519
  Transmission Date: 20141212
  Serious: No
  Sender: FDA-Public Use
  Company Number: US-BIOGENIDEC-2014BI040086

PATIENT
  Sex: Female
  Weight: 58 kg

DRUGS (8)
  1. TECFIDERA [Suspect]
     Indication: PRODUCT USED FOR UNKNOWN INDICATION
     Route: 048
  2. SERTRALINE [Concomitant]
  3. LORAZEPAM [Concomitant]
  4. ADV AIR HFA AER 45/21 [Concomitant]
  5. NEXIUM [Concomitant]
  6. RANITIDINE [Concomitant]
  7. VITAMIN B-12 [Concomitant]
  8. VITAMIN D [Concomitant]

REACTIONS (5)
  - Paraesthesia [Unknown]
  - Depression [Unknown]
  - Phobia [Unknown]
  - Vitamin B12 increased [Unknown]
  - Erythema [Unknown]
